FAERS Safety Report 7068606-1 (Version None)
Quarter: 2010Q4

REPORT INFORMATION
  Report Type: 
  Country: None (occurrence: None)
  Receive Date: 20101028
  Receipt Date: 20101019
  Transmission Date: 20110411
  Serious: Yes (Hospitalization)
  Sender: FDA-Public Use
  Company Number: CH-SANOFI-AVENTIS-2010SA064158

PATIENT
  Age: 81 Year
  Sex: Male

DRUGS (12)
  1. DAONIL [Suspect]
     Route: 048
     Dates: end: 20100926
  2. METFORMIN [Suspect]
     Route: 048
     Dates: end: 20100926
  3. CIPROFLOXACIN [Interacting]
     Route: 048
     Dates: start: 20100921, end: 20100926
  4. KLACID [Suspect]
     Route: 048
     Dates: start: 20100921, end: 20100926
  5. SOTALEX [Suspect]
     Route: 048
  6. ENATEC [Suspect]
     Route: 048
  7. SINTROM [Concomitant]
     Route: 048
  8. NORVASC [Concomitant]
     Route: 048
  9. TORASEMIDE [Concomitant]
     Route: 048
  10. ATORVASTATIN [Concomitant]
     Route: 048
  11. CYMBALTA [Concomitant]
     Route: 048
  12. AGOPTON [Concomitant]
     Route: 048

REACTIONS (3)
  - DRUG INTERACTION [None]
  - FALL [None]
  - HYPOGLYCAEMIA [None]
